FAERS Safety Report 18061026 (Version 1)
Quarter: 2020Q3

REPORT INFORMATION
  Report Type: Spontaneous
  Country: US (occurrence: US)
  Receive Date: 20200723
  Receipt Date: 20200723
  Transmission Date: 20201103
  Serious: No
  Sender: FDA-Public Use
  Company Number: US-ENDO PHARMACEUTICALS INC-2019-105903

PATIENT
  Sex: Male
  Weight: 72.56 kg

DRUGS (1)
  1. EDEX [Suspect]
     Active Substance: ALPROSTADIL
     Indication: ERECTILE DYSFUNCTION
     Dosage: 40 MCG, UNKNOWN
     Route: 065
     Dates: start: 1994

REACTIONS (1)
  - Therapeutic product effect decreased [Unknown]
